FAERS Safety Report 25524002 (Version 2)
Quarter: 2025Q3

REPORT INFORMATION
  Report Type: Spontaneous
  Country: US (occurrence: US)
  Receive Date: 20250707
  Receipt Date: 20250908
  Transmission Date: 20251020
  Serious: Yes (Other)
  Sender: MYLAN
  Company Number: US-MYLANLABS-2025M1055639

PATIENT
  Age: 37 Year
  Sex: Male

DRUGS (4)
  1. SILDENAFIL [Suspect]
     Active Substance: SILDENAFIL
     Indication: Product used for unknown indication
  2. SILDENAFIL [Suspect]
     Active Substance: SILDENAFIL
     Route: 065
  3. SILDENAFIL [Suspect]
     Active Substance: SILDENAFIL
     Route: 065
  4. SILDENAFIL [Suspect]
     Active Substance: SILDENAFIL

REACTIONS (2)
  - Drug abuse [Unknown]
  - Optic ischaemic neuropathy [Unknown]
